FAERS Safety Report 9512420 (Version 1)
Quarter: 2013Q3

REPORT INFORMATION
  Report Type: Spontaneous
  Country: US (occurrence: US)
  Receive Date: 20130910
  Receipt Date: 20130910
  Transmission Date: 20140515
  Serious: Yes (Hospitalization)
  Sender: FDA-Public Use
  Company Number: US-B.I. PHARMACEUTICALS,INC./RIDGEFIELD-2013-BI-27848BP

PATIENT
  Age: 7 Decade
  Sex: Female

DRUGS (1)
  1. TRADJENTA [Suspect]

REACTIONS (4)
  - Abdominal pain [Unknown]
  - Lipase abnormal [Unknown]
  - Amylase abnormal [Unknown]
  - Cardiac enzymes increased [Unknown]
